FAERS Safety Report 4535993-5 (Version None)
Quarter: 2005Q1

REPORT INFORMATION
  Report Type: 
  Country: None (occurrence: None)
  Receive Date: 20041216
  Receipt Date: 20040324
  Transmission Date: 20050727
  Serious: Yes (Other)
  Sender: FDA-Public Use
  Company Number: HQWYE191129MAR04

PATIENT
  Age: 35 Year
  Sex: Female
  Weight: 58.57 kg

DRUGS (5)
  1. EFFEXOR XR [Suspect]
     Indication: DEPRESSION
     Dosage: SEE IMAGE
     Route: 048
     Dates: start: 20040201, end: 20040229
  2. EFFEXOR XR [Suspect]
     Indication: DEPRESSION
     Dosage: SEE IMAGE
     Route: 048
     Dates: start: 20040301, end: 20040323
  3. XANAX [Concomitant]
  4. FIORICET W/CODEINE (BUTALBITAL/CAFFEINE/CODEINE PHOSPHATE/PARACETAMOL) [Concomitant]
  5. REGLAN [Concomitant]

REACTIONS (6)
  - ANXIETY [None]
  - DEHYDRATION [None]
  - DEPRESSION [None]
  - DRUG EFFECT DECREASED [None]
  - NAUSEA [None]
  - SUICIDAL IDEATION [None]
